FAERS Safety Report 5322190-9 (Version None)
Quarter: 2007Q2

REPORT INFORMATION
  Report Type: 
  Country: None (occurrence: None)
  Receive Date: 20070511
  Receipt Date: 20070502
  Transmission Date: 20071010
  Serious: Yes (Hospitalization, Other)
  Sender: FDA-Public Use
  Company Number: US-AMGEN-US203551

PATIENT
  Sex: Female

DRUGS (10)
  1. ETANERCEPT [Suspect]
     Indication: RHEUMATOID ARTHRITIS
     Route: 058
     Dates: start: 19980120, end: 20061124
  2. DARVOCET-N 100 [Concomitant]
  3. VITAMIN D [Concomitant]
  4. COMBIVENT [Concomitant]
  5. MAVIK [Concomitant]
  6. BISOPROLOL FUMARATE [Concomitant]
     Route: 047
  7. PRAVACHOL [Concomitant]
  8. ACTONEL [Concomitant]
  9. LUNESTA [Concomitant]
  10. ERGOCALCIFEROL [Concomitant]

REACTIONS (2)
  - LUNG NEOPLASM [None]
  - PNEUMONIA [None]
